FAERS Safety Report 10516240 (Version 1)
Quarter: 2014Q4

REPORT INFORMATION
  Report Type: Spontaneous
  Country: US (occurrence: None)
  Receive Date: 20141003
  Receipt Date: 20141003
  Transmission Date: 20150528
  Serious: Yes (Other)
  Sender: FDA-Public Use
  Company Number: 2014-11811

PATIENT
  Age: 36 Year
  Sex: Female
  Weight: 59 kg

DRUGS (5)
  1. MACROBID [Concomitant]
     Active Substance: NITROFURANTOIN\NITROFURANTOIN MONOHYDRATE
  2. BUPROPION HYDROCHLORIDE (WATSON LABORATORIES) (BUPROPION HYDROCHLORIDE) [Suspect]
     Active Substance: BUPROPION HYDROCHLORIDE
     Indication: DEPRESSION
     Route: 048
     Dates: start: 201403, end: 201404
  3. ALBUTEROL (SALBUTAMOL) [Concomitant]
     Active Substance: ALBUTEROL
  4. FIORICET (BUTABITAL, CAFFEINE, PARACETAMOL) [Concomitant]
  5. ADVAIR DISKUS [Suspect]
     Active Substance: FLUTICASONE PROPIONATE\SALMETEROL XINAFOATE

REACTIONS (12)
  - Irritability [None]
  - Decreased interest [None]
  - Feelings of worthlessness [None]
  - Suicidal ideation [None]
  - Depression [None]
  - Personality change [None]
  - Drug ineffective [None]
  - Asthenia [None]
  - Crying [None]
  - Family stress [None]
  - Feeling abnormal [None]
  - Mental disorder [None]

NARRATIVE: CASE EVENT DATE: 201404
